FAERS Safety Report 4534469-9 (Version None)
Quarter: 2004Q4

REPORT INFORMATION
  Report Type: 
  Country: None (occurrence: None)
  Receive Date: 20041214
  Receipt Date: 20041025
  Transmission Date: 20050328
  Serious: No
  Sender: FDA-Public Use
  Company Number: 2004241795US

PATIENT
  Age: 78 Year
  Sex: Female
  Weight: 62.6 kg

DRUGS (3)
  1. BEXTRA [Suspect]
     Indication: TENDONITIS
     Dosage: 10 MG, QD, ORAL
     Route: 048
     Dates: start: 20041005, end: 20041012
  2. ASPIRIN ENTERIC COATED KP [Concomitant]
  3. LIBRIUM (CXHLORDIAZEPOXIDE HYDROCHLORIDE) [Concomitant]

REACTIONS (5)
  - EYE PRURITUS [None]
  - FUNGAL INFECTION [None]
  - GLOSSODYNIA [None]
  - STOMATITIS [None]
  - TONGUE DISORDER [None]
